FAERS Safety Report 5523340-1 (Version None)
Quarter: 2007Q4

REPORT INFORMATION
  Report Type: 
  Country: None (occurrence: None)
  Receive Date: 20071121
  Receipt Date: 20071120
  Transmission Date: 20080405
  Serious: Yes (Hospitalization)
  Sender: FDA-Public Use
  Company Number: B0359433A

PATIENT
  Sex: Female

DRUGS (5)
  1. SEROXAT [Suspect]
     Route: 065
     Dates: start: 19960101
  2. ALBUTEROL [Concomitant]
  3. BECLOMETHASONE DIPROPIONATE [Concomitant]
  4. THIORIDAZINE [Concomitant]
  5. ZOPICLONE [Concomitant]

REACTIONS (7)
  - ANGER [None]
  - DRUG WITHDRAWAL SYNDROME [None]
  - FLASHBACK [None]
  - INTENTIONAL SELF-INJURY [None]
  - IRRITABILITY [None]
  - SUICIDE ATTEMPT [None]
  - TEARFULNESS [None]
